FAERS Safety Report 16243570 (Version 5)
Quarter: 2019Q3

REPORT INFORMATION
  Report Type: Spontaneous
  Country: US (occurrence: US)
  Receive Date: 20190426
  Receipt Date: 20190927
  Transmission Date: 20191004
  Serious: Yes (Hospitalization, Other)
  Sender: FDA-Public Use
  Company Number: US-PFIZER INC-2019168642

PATIENT
  Age: 81 Year
  Sex: Female
  Weight: 73 kg

DRUGS (29)
  1. PREMARIN [Suspect]
     Active Substance: ESTROGENS, CONJUGATED
     Indication: MENOPAUSE
     Dosage: 1.75 MG, ONCE DAILY
     Route: 048
  2. COLLAGEN [Concomitant]
     Active Substance: COLLAGEN
     Dosage: UNK
     Dates: start: 1998
  3. LOVASTATIN. [Concomitant]
     Active Substance: LOVASTATIN
     Indication: CARDIAC DISORDER
  4. HYDROXYCHLOROQUINE [Concomitant]
     Active Substance: HYDROXYCHLOROQUINE
     Indication: SYSTEMIC LUPUS ERYTHEMATOSUS
     Dosage: 200 MG, DAILY
  5. VITAMIN C WITH ROSE HIPS [Concomitant]
     Dosage: UNK
     Dates: start: 1990
  6. COLLAGEN [Concomitant]
     Active Substance: COLLAGEN
     Dosage: 1000 ML, DAILY
  7. METOPROLOL [METOPROLOL SUCCINATE] [Concomitant]
     Indication: CARDIAC DISORDER
     Dosage: 100 MG, DAILY
     Dates: start: 1995
  8. HYDROXYCHLOROQUINE [Concomitant]
     Active Substance: HYDROXYCHLOROQUINE
     Dosage: UNK
  9. GLUCOSAMINE AND CHONDROITIN [Concomitant]
     Active Substance: CHONDROITIN SULFATE (BOVINE)\GLUCOSAMINE HYDROCHLORIDE
     Dosage: UNK
  10. VITAMIN B [Concomitant]
     Active Substance: VITAMIN B
     Dosage: UNK
  11. PREMARIN [Suspect]
     Active Substance: ESTROGENS, CONJUGATED
     Indication: CERVIX NEOPLASM
     Dosage: UNKNOWN DOSE
     Dates: end: 201806
  12. PREMARIN [Suspect]
     Active Substance: ESTROGENS, CONJUGATED
     Indication: HOT FLUSH
     Dosage: UNK UNK, DAILY (.03 DAILY)
     Route: 048
     Dates: start: 1956
  13. COLLAGEN [Concomitant]
     Active Substance: COLLAGEN
     Dosage: 500 MG, UNK
  14. CLONIDINE. [Concomitant]
     Active Substance: CLONIDINE
     Indication: BLOOD DISORDER
     Dosage: 0.1 MG, DAILY
     Dates: start: 1998
  15. CLONIDINE. [Concomitant]
     Active Substance: CLONIDINE
     Dosage: UNK
     Dates: start: 1980
  16. LOVASTATIN. [Concomitant]
     Active Substance: LOVASTATIN
     Indication: BLOOD DISORDER
     Dosage: 40 MG, DAILY
     Dates: start: 1995
  17. LOVASTATIN. [Concomitant]
     Active Substance: LOVASTATIN
     Indication: ANTICOAGULANT THERAPY
     Dosage: UNK
     Dates: start: 1990
  18. HCTZ [Concomitant]
     Active Substance: HYDROCHLOROTHIAZIDE
     Dosage: UNK
  19. METOPROLOL [METOPROLOL SUCCINATE] [Concomitant]
     Dosage: UNK
  20. VALACYCLOVIR HCL [Concomitant]
     Active Substance: VALACYCLOVIR HYDROCHLORIDE
     Dosage: UNK
  21. GLUCOSAMINE [Concomitant]
     Active Substance: GLUCOSAMINE
     Dosage: 100 MG, DAILY
     Dates: start: 1995
  22. LISINOPRIL. [Concomitant]
     Active Substance: LISINOPRIL
     Indication: CARDIAC DISORDER
     Dosage: 40 MG, DAILY
     Dates: start: 1995
  23. VALACYCLOVIR HCL [Concomitant]
     Active Substance: VALACYCLOVIR HYDROCHLORIDE
     Dosage: 500 MG, DAILY
  24. VITAMIN A [RETINOL ACETATE] [Concomitant]
     Dosage: UNK
  25. COLLAGEN [Concomitant]
     Active Substance: COLLAGEN
     Dosage: 1000 MG, UNK
  26. HCTZ [Concomitant]
     Active Substance: HYDROCHLOROTHIAZIDE
     Indication: CARDIAC DISORDER
     Dosage: 10 MG, DAILY
     Dates: start: 1995
  27. LISINOPRIL. [Concomitant]
     Active Substance: LISINOPRIL
     Dosage: UNK
  28. GLUCOSAMINE [Concomitant]
     Active Substance: GLUCOSAMINE
     Dosage: UNK
  29. CALCIUM [Concomitant]
     Active Substance: CALCIUM
     Dosage: UNK

REACTIONS (7)
  - Sciatica [Recovered/Resolved]
  - Hair growth abnormal [Recovering/Resolving]
  - Movement disorder [Not Recovered/Not Resolved]
  - Pain [Recovered/Resolved]
  - Balance disorder [Not Recovered/Not Resolved]
  - Ovarian cyst [Recovered/Resolved]
  - Therapeutic response unexpected [Recovering/Resolving]

NARRATIVE: CASE EVENT DATE: 2018
